FAERS Safety Report 5902116-7 (Version None)
Quarter: 2008Q3

REPORT INFORMATION
  Report Type: 
  Country: None (occurrence: None)
  Receive Date: 20080929
  Receipt Date: 20080917
  Transmission Date: 20090109
  Serious: Yes (Hospitalization, Other)
  Sender: FDA-Public Use
  Company Number: US-PFIZER INC-2008078800

PATIENT
  Sex: Male

DRUGS (2)
  1. GEODON [Suspect]
  2. PROLIXIN [Suspect]
     Indication: PSYCHOTIC DISORDER

REACTIONS (3)
  - DIZZINESS [None]
  - FALL [None]
  - PSYCHOTIC DISORDER [None]
